FAERS Safety Report 12745043 (Version 2)
Quarter: 2016Q4

REPORT INFORMATION
  Report Type: Spontaneous
  Country: US (occurrence: US)
  Receive Date: 20160915
  Receipt Date: 20161006
  Transmission Date: 20170207
  Serious: Yes (Life-Threatening)
  Sender: FDA-Public Use
  Company Number: US-BAUSCH-BL-2016-021759

PATIENT
  Age: 38 Year
  Sex: Female

DRUGS (5)
  1. CALADRYL [Suspect]
     Active Substance: CALAMINE\DIPHENHYDRAMINE HYDROCHLORIDE\FERRIC OXIDE RED\PRAMOXINE HYDROCHLORIDE\ZINC OXIDE
     Indication: HYPERSENSITIVITY
     Route: 061
     Dates: start: 20160903
  2. DAPSONE. [Concomitant]
     Active Substance: DAPSONE
     Indication: FATIGUE
  3. DAPSONE. [Concomitant]
     Active Substance: DAPSONE
     Indication: ASTHENOPIA
  4. ELIDEL [Suspect]
     Active Substance: PIMECROLIMUS
     Indication: DERMATITIS
     Dosage: AS NEEDED
     Route: 061
     Dates: start: 20160820, end: 20160902
  5. BENADRYL [Suspect]
     Active Substance: DIPHENHYDRAMINE HYDROCHLORIDE
     Indication: HYPERSENSITIVITY
     Route: 048
     Dates: start: 20160903, end: 20160903

REACTIONS (3)
  - Application site pain [Recovering/Resolving]
  - Hypersensitivity [Recovering/Resolving]
  - Somnolence [Recovering/Resolving]

NARRATIVE: CASE EVENT DATE: 201609
